FAERS Safety Report 6638135 (Version 13)
Quarter: 2014Q1

REPORT INFORMATION
  Report Type: Spontaneous
  Country: US (occurrence: US)
  Receive Date: 20080512
  Receipt Date: 20140321
  Transmission Date: 20141002
  Serious: Yes (Death, Other)
  Sender: FDA-Public Use
  Company Number: PHEH2008US04335

PATIENT
  Age: 56 Year
  Sex: Female

DRUGS (14)
  1. AREDIA [Suspect]
     Route: 042
  2. FOSAMAX [Suspect]
  3. AMOXICILLIN [Concomitant]
     Dosage: 500 MG, UNK
  4. RADIATION THERAPY [Concomitant]
  5. ARIMIDEX [Concomitant]
  6. TAMOXIFEN [Concomitant]
  7. TYLENOL [Concomitant]
  8. VITAMIN E [Concomitant]
  9. ADRIAMYCIN [Concomitant]
  10. CYTOXAN [Concomitant]
  11. AROMASIN [Concomitant]
  12. FEMARA [Concomitant]
  13. CEPHALEXIN [Concomitant]
  14. CHEMOTHERAPEUTICS [Concomitant]

REACTIONS (66)
  - Death [Fatal]
  - Osteonecrosis of jaw [Unknown]
  - Injury [Unknown]
  - Disability [Unknown]
  - Pain [Unknown]
  - Anxiety [Unknown]
  - Anhedonia [Unknown]
  - Denture wearer [Unknown]
  - Kidney infection [Recovered/Resolved]
  - Arthritis [Unknown]
  - Hypercholesterolaemia [Unknown]
  - Effusion [Unknown]
  - Pleural fibrosis [Unknown]
  - Bullous lung disease [Unknown]
  - Diabetes mellitus [Unknown]
  - Neoplasm progression [Unknown]
  - Malignant neoplasm progression [Unknown]
  - Metastases to lung [Unknown]
  - Metastases to liver [Unknown]
  - Metastases to bone [Unknown]
  - Central nervous system lesion [Unknown]
  - Metastases to central nervous system [Unknown]
  - Vasogenic cerebral oedema [Unknown]
  - Neuropathy peripheral [Unknown]
  - Hepatic steatosis [Unknown]
  - Fall [Unknown]
  - Vertebral foraminal stenosis [Unknown]
  - Amnesia [Unknown]
  - Gait disturbance [Unknown]
  - Confusional state [Unknown]
  - Radiculopathy [Unknown]
  - Palmar-plantar erythrodysaesthesia syndrome [Unknown]
  - Convulsion [Unknown]
  - Dyspnoea [Unknown]
  - Anaemia [Unknown]
  - Onychomycosis [Unknown]
  - Ingrowing nail [Unknown]
  - Onychogryphosis [Unknown]
  - Decreased appetite [Unknown]
  - Weight decreased [Unknown]
  - Back pain [Unknown]
  - Exostosis [Unknown]
  - Hypoaesthesia [Unknown]
  - Vision blurred [Unknown]
  - Breast tenderness [Unknown]
  - Oropharyngeal pain [Unknown]
  - Disorientation [Unknown]
  - Memory impairment [Unknown]
  - Lethargy [Unknown]
  - Fatigue [Unknown]
  - Incontinence [Unknown]
  - Constipation [Unknown]
  - Dysfunctional uterine bleeding [Unknown]
  - Ovarian cyst [Unknown]
  - Osteoarthritis [Unknown]
  - Pulmonary mass [Unknown]
  - Bladder dilatation [Unknown]
  - Osteosclerosis [Unknown]
  - Metastases to spine [Unknown]
  - Bone cancer metastatic [Unknown]
  - Back injury [Unknown]
  - Lung hyperinflation [Unknown]
  - Adnexa uteri cyst [Unknown]
  - Interstitial lung disease [Unknown]
  - Brain midline shift [Unknown]
  - Dizziness [Unknown]
